FAERS Safety Report 6567264-X (Version None)
Quarter: 2010Q1

REPORT INFORMATION
  Report Type: 
  Country: None (occurrence: None)
  Receive Date: 20100202
  Receipt Date: 20100122
  Transmission Date: 20100710
  Serious: Yes (Death, Other)
  Sender: FDA-Public Use
  Company Number: US-BAXTER-2009BH018708

PATIENT
  Age: 78 Year
  Sex: Male

DRUGS (2)
  1. HEPARIN SODIUM INJECTION [Suspect]
     Indication: DRUG USE FOR UNKNOWN INDICATION
     Route: 065
     Dates: start: 20071226, end: 20080113
  2. HEPARIN SODIUM INJECTION [Suspect]
     Route: 065
     Dates: start: 20080116

REACTIONS (8)
  - DEATH [None]
  - HAEMORRHAGE [None]
  - HEPARIN-INDUCED THROMBOCYTOPENIA [None]
  - HYPOTENSION [None]
  - MALAISE [None]
  - NAUSEA [None]
  - RESPIRATORY FAILURE [None]
  - VOMITING [None]
